FAERS Safety Report 23822999 (Version 1)
Quarter: 2024Q2

REPORT INFORMATION
  Report Type: Spontaneous
  Country: US (occurrence: US)
  Receive Date: 20240506
  Receipt Date: 20240506
  Transmission Date: 20240716
  Serious: Yes (Other)
  Sender: FDA-Public Use
  Company Number: US-ABBVIE-5745917

PATIENT
  Sex: Female

DRUGS (2)
  1. VRAYLAR [Suspect]
     Active Substance: CARIPRAZINE
     Indication: Persistent depressive disorder
     Dosage: 1.5MG CAP
     Route: 048
  2. VRAYLAR [Suspect]
     Active Substance: CARIPRAZINE
     Indication: Persistent depressive disorder
     Dosage: 1.5MG CAP
     Route: 048

REACTIONS (6)
  - Suicidal ideation [Recovered/Resolved]
  - Malaise [Recovered/Resolved]
  - Illness [Recovered/Resolved]
  - Adjustment disorder with depressed mood [Recovered/Resolved]
  - Asthenia [Recovered/Resolved]
  - Depression [Unknown]
